FAERS Safety Report 4784546-2 (Version None)
Quarter: 2005Q3

REPORT INFORMATION
  Report Type: 
  Country: None (occurrence: None)
  Receive Date: 20050930
  Receipt Date: 20050923
  Transmission Date: 20060218
  Serious: Yes (Death)
  Sender: FDA-Public Use
  Company Number: US-JNJFOC-20050905815

PATIENT

DRUGS (2)
  1. DURAGESIC-100 [Suspect]
     Indication: POSTOPERATIVE ANALGESIA
     Route: 062
  2. MORPHINE [Suspect]
     Indication: POSTOPERATIVE ANALGESIA
     Route: 042

REACTIONS (2)
  - CARDIO-RESPIRATORY ARREST [None]
  - OFF LABEL USE [None]
